FAERS Safety Report 19741296 (Version 2)
Quarter: 2021Q3

REPORT INFORMATION
  Report Type: Spontaneous
  Country: US (occurrence: US)
  Receive Date: 20210824
  Receipt Date: 20210920
  Transmission Date: 20211014
  Serious: No
  Sender: FDA-Public Use
  Company Number: US-GLAXOSMITHKLINE-US2021174380

PATIENT
  Sex: Female

DRUGS (1)
  1. BREO ELLIPTA [Suspect]
     Active Substance: FLUTICASONE FUROATE\VILANTEROL TRIFENATATE
     Indication: PRODUCT USED FOR UNKNOWN INDICATION
     Dosage: 1 PUFF(S), QD,100/25
     Route: 055

REACTIONS (5)
  - Nausea [Unknown]
  - Nasopharyngitis [Unknown]
  - Product complaint [Unknown]
  - Throat irritation [Not Recovered/Not Resolved]
  - Inappropriate schedule of product administration [Unknown]
